FAERS Safety Report 4803654-0 (Version None)
Quarter: 2005Q4

REPORT INFORMATION
  Report Type: 
  Country: None (occurrence: None)
  Receive Date: 20051014
  Receipt Date: 20051005
  Transmission Date: 20060501
  Serious: Yes (Hospitalization)
  Sender: FDA-Public Use
  Company Number: GXKR2005DK01761

PATIENT
  Age: 64 Year
  Sex: Male
  Weight: 100 kg

DRUGS (3)
  1. ALLOPURINOL [Suspect]
     Indication: GOUT
     Dosage: ORAL
     Route: 048
  2. AMLODIPINE [Concomitant]
  3. XYZAL (LEVOCETIRIZINE DIHYROCHLORIDE) [Concomitant]

REACTIONS (4)
  - CEREBRAL INFARCTION [None]
  - EOSINOPHILIA [None]
  - RASH [None]
  - VASCULITIS CEREBRAL [None]
